FAERS Safety Report 10526228 (Version 7)
Quarter: 2015Q2

REPORT INFORMATION
  Report Type: Report from Study
  Country: US (occurrence: US)
  Receive Date: 20141017
  Receipt Date: 20150528
  Transmission Date: 20150821
  Serious: Yes (Death, Hospitalization, Other)
  Sender: FDA-Public Use
  Company Number: US-ACTELION-A-NJ2014-106639

PATIENT
  Age: 49 Year
  Sex: Female

DRUGS (4)
  1. SILDENAFIL. [Concomitant]
     Active Substance: SILDENAFIL
  2. LOVENOX [Concomitant]
     Active Substance: ENOXAPARIN SODIUM
  3. TYVASO [Concomitant]
     Active Substance: TREPROSTINIL
  4. TRACLEER [Suspect]
     Active Substance: BOSENTAN\BOSENTAN MONOHYDRATE
     Indication: PULMONARY ARTERIAL HYPERTENSION
     Dosage: 125 MG, BID
     Route: 048
     Dates: end: 20141119

REACTIONS (7)
  - Cardiac failure [Fatal]
  - Sepsis [Unknown]
  - Pain [Unknown]
  - Uterine leiomyoma [Unknown]
  - Nausea [Unknown]
  - Cardiac arrest [Fatal]
  - Uterine leiomyoma embolisation [Unknown]

NARRATIVE: CASE EVENT DATE: 20141119
